FAERS Safety Report 7837752-4 (Version None)
Quarter: 2011Q4

REPORT INFORMATION
  Report Type: 
  Country: None (occurrence: None)
  Receive Date: 20111024
  Receipt Date: 20101104
  Transmission Date: 20120403
  Serious: No
  Sender: FDA-Public Use
  Company Number: US-BAYER-201040193NA

PATIENT
  Sex: Female

DRUGS (3)
  1. LEVAQUIN [Suspect]
  2. CIPROFLOXACIN [Suspect]
  3. VANCOMYCIN HCL [Suspect]

REACTIONS (1)
  - DRUG HYPERSENSITIVITY [None]
